FAERS Safety Report 9932831 (Version 1)
Quarter: 2014Q1

REPORT INFORMATION
  Report Type: Spontaneous
  Country: US (occurrence: None)
  Receive Date: 20140227
  Receipt Date: 20140227
  Transmission Date: 20141002
  Serious: Yes (Other)
  Sender: FDA-Public Use
  Company Number: None

PATIENT
  Age: 27 Year
  Sex: Female
  Weight: 79.38 kg

DRUGS (2)
  1. LITHIUM CARBONATE [Suspect]
     Indication: BIPOLAR DISORDER
     Dosage: 2 DOSE BID ORAL
     Route: 048
     Dates: start: 20140122, end: 20140226
  2. LITHIUM CARBONATE [Suspect]
     Indication: SCHIZOPHRENIA
     Dosage: 2 DOSE BID ORAL
     Route: 048
     Dates: start: 20140122, end: 20140226

REACTIONS (3)
  - Vision blurred [None]
  - Dry skin [None]
  - Tremor [None]
